FAERS Safety Report 20556337 (Version 6)
Quarter: 2022Q2

REPORT INFORMATION
  Report Type: Spontaneous
  Country: US (occurrence: US)
  Receive Date: 20220305
  Receipt Date: 20220607
  Transmission Date: 20220720
  Serious: No
  Sender: FDA-Public Use
  Company Number: US-UNITED THERAPEUTICS-UNT-2022-004867

PATIENT
  Age: 1 Year
  Sex: Male
  Weight: 14.1 kg

DRUGS (3)
  1. REMODULIN [Suspect]
     Active Substance: TREPROSTINIL
     Indication: Pulmonary arterial hypertension
     Dosage: UNK, CONTINUING
     Route: 058
     Dates: start: 20201030
  2. REMODULIN [Suspect]
     Active Substance: TREPROSTINIL
     Dosage: 0.0804 ?G/KG, CONTINUING
     Route: 058
  3. REMODULIN [Suspect]
     Active Substance: TREPROSTINIL
     Dosage: 0.0862 ?G/KG, CONTINUING
     Route: 058

REACTIONS (8)
  - Infusion site swelling [Recovered/Resolved]
  - Infusion site erythema [Recovered/Resolved]
  - Infusion site irritation [Recovered/Resolved]
  - Infusion site warmth [Recovered/Resolved]
  - Product quality issue [Unknown]
  - Decreased appetite [Recovering/Resolving]
  - Irritability [Recovering/Resolving]
  - Infusion site pain [Recovered/Resolved]

NARRATIVE: CASE EVENT DATE: 20220201
